FAERS Safety Report 13810362 (Version 2)
Quarter: 2017Q3

REPORT INFORMATION
  Report Type: Report from Study
  Country: US (occurrence: US)
  Receive Date: 20170728
  Receipt Date: 20170809
  Transmission Date: 20171127
  Serious: Yes (Death, Other)
  Sender: FDA-Public Use
  Company Number: US-VIFOR (INTERNATIONAL) INC.-VIT-2017-07966

PATIENT
  Age: 69 Year
  Sex: Male
  Weight: 69.92 kg

DRUGS (3)
  1. VELTASSA [Suspect]
     Active Substance: PATIROMER
     Indication: BLOOD POTASSIUM INCREASED
     Route: 048
     Dates: start: 20170303, end: 201703
  2. VORICONAZOLE. [Concomitant]
     Active Substance: VORICONAZOLE
  3. TACROLIMUS. [Concomitant]
     Active Substance: TACROLIMUS

REACTIONS (7)
  - Cardiac disorder [Unknown]
  - Renal disorder [Unknown]
  - Fall [Unknown]
  - Death [Fatal]
  - Hip fracture [Unknown]
  - Fluid overload [Unknown]
  - Respiratory disorder [Unknown]

NARRATIVE: CASE EVENT DATE: 20170705
